FAERS Safety Report 21043504 (Version 1)
Quarter: 2022Q3

REPORT INFORMATION
  Report Type: Spontaneous
  Country: US (occurrence: US)
  Receive Date: 20220705
  Receipt Date: 20220705
  Transmission Date: 20221026
  Serious: No
  Sender: FDA-Public Use
  Company Number: US-SAREPTA THERAPEUTICS INC.-SRP2021-001699

PATIENT
  Age: 21 Year
  Sex: Male
  Weight: 53.515 kg

DRUGS (2)
  1. EXONDYS 51 [Suspect]
     Active Substance: ETEPLIRSEN
     Indication: Duchenne muscular dystrophy
     Dosage: 1700 MILLIGRAM, WEEKLY
     Route: 042
     Dates: start: 20200601, end: 20210916
  2. EXONDYS 51 [Suspect]
     Active Substance: ETEPLIRSEN
     Dosage: 1700 MILLIGRAM, WEEKLY
     Route: 042
     Dates: start: 20211007

REACTIONS (2)
  - Intentional dose omission [Unknown]
  - No adverse event [Unknown]

NARRATIVE: CASE EVENT DATE: 20210924
